FAERS Safety Report 9636573 (Version 5)
Quarter: 2014Q4

REPORT INFORMATION
  Report Type: Report from Study
  Country: DE (occurrence: DE)
  Receive Date: 20131021
  Receipt Date: 20141121
  Transmission Date: 20150529
  Serious: Yes (Death, Other)
  Sender: FDA-Public Use
  Company Number: DE-ABBVIE-13P-062-1121300-00

PATIENT
  Age: 55 Year
  Sex: Male

DRUGS (5)
  1. TRENANTONE [Suspect]
     Active Substance: LEUPROLIDE ACETATE
     Indication: PROSTATE CANCER
     Route: 058
     Dates: start: 20130107, end: 20130411
  2. ALL OTHER THERAPEUTIC PRODUCTS [Concomitant]
     Active Substance: UNSPECIFIED INGREDIENT
     Indication: OSTEOPOROSIS
     Route: 065
  3. ENANTONE LP [Suspect]
     Active Substance: LEUPROLIDE ACETATE
     Indication: PROSTATE CANCER
     Dosage: MONTHLY
     Route: 058
     Dates: start: 20130711, end: 20130711
  4. ALL OTHER THERAPEUTIC PRODUCTS [Concomitant]
     Active Substance: UNSPECIFIED INGREDIENT
     Indication: PROSTATE CANCER
     Route: 065
  5. TRENANTONE [Suspect]
     Active Substance: LEUPROLIDE ACETATE
     Route: 058
     Dates: start: 20130806, end: 20130806

REACTIONS (5)
  - Haemoglobin decreased [Recovering/Resolving]
  - Urinary retention [Unknown]
  - Metastases to bone [Unknown]
  - Hydronephrosis [Unknown]
  - Death [Fatal]

NARRATIVE: CASE EVENT DATE: 20130508
